FAERS Safety Report 12500329 (Version 1)
Quarter: 2016Q2

REPORT INFORMATION
  Report Type: Spontaneous
  Country: AT (occurrence: AT)
  Receive Date: 20160627
  Receipt Date: 20160627
  Transmission Date: 20160815
  Serious: Yes (Death)
  Sender: FDA-Public Use
  Company Number: AT-ACTELION-A-CH2016-137847

PATIENT
  Age: 87 Year
  Sex: Female
  Weight: 60 kg

DRUGS (6)
  1. ASPIRIN. [Concomitant]
     Active Substance: ASPIRIN
     Dosage: 100 MG, QD
     Route: 048
  2. XARELTO [Concomitant]
     Active Substance: RIVAROXABAN
     Dosage: 20 MG, QD
  3. OPSUMIT [Suspect]
     Active Substance: MACITENTAN
     Indication: PULMONARY ARTERIAL HYPERTENSION
     Dosage: 10 MG, OD
     Route: 048
     Dates: start: 201504
  4. CONCOR COR [Concomitant]
     Active Substance: BISOPROLOL FUMARATE
     Indication: HYPERTENSION
     Dosage: 1.25 MG, OD
     Route: 048
  5. NEXIUM [Concomitant]
     Active Substance: ESOMEPRAZOLE MAGNESIUM
     Dosage: 20 MG, QD
     Route: 048
  6. APREDNISLON [Suspect]
     Active Substance: PREDNISOLONE
     Indication: SYSTEMIC SCLEROSIS
     Dosage: 5 MG, OD
     Route: 048
     Dates: start: 20151117

REACTIONS (4)
  - Respiratory failure [Fatal]
  - Pulmonary arterial hypertension [Fatal]
  - Pulmonary fibrosis [Fatal]
  - Pneumonia [Fatal]

NARRATIVE: CASE EVENT DATE: 20160324
